FAERS Safety Report 13834097 (Version 1)
Quarter: 2017Q3

REPORT INFORMATION
  Report Type: Spontaneous
  Country: US (occurrence: US)
  Receive Date: 20170804
  Receipt Date: 20170804
  Transmission Date: 20171127
  Serious: No
  Sender: FDA-Public Use
  Company Number: US-BAYER-2017-149349

PATIENT
  Age: 77 Year
  Sex: Female
  Weight: 64 kg

DRUGS (2)
  1. BAYER ASPIRIN [Concomitant]
     Active Substance: ASPIRIN
  2. CLARITIN [Suspect]
     Active Substance: LORATADINE
     Route: 048
     Dates: start: 20170708

REACTIONS (4)
  - Poor quality drug administered [Unknown]
  - Product friable [Unknown]
  - Off label use [Unknown]
  - Therapeutic response unexpected [None]

NARRATIVE: CASE EVENT DATE: 20170708
